FAERS Safety Report 24378481 (Version 1)
Quarter: 2024Q3

REPORT INFORMATION
  Report Type: Spontaneous
  Country: US (occurrence: US)
  Receive Date: 20240930
  Receipt Date: 20240930
  Transmission Date: 20241017
  Serious: No
  Sender: SANOFI AVENTIS
  Company Number: US-SA-2024SA275654

PATIENT
  Age: 76 Year

DRUGS (3)
  1. MULTAQ [Suspect]
     Active Substance: DRONEDARONE
     Indication: Essential hypertension
     Dosage: 400MG, BID
     Route: 048
  2. MULTAQ [Suspect]
     Active Substance: DRONEDARONE
     Indication: Hyperlipidaemia
  3. MULTAQ [Suspect]
     Active Substance: DRONEDARONE
     Indication: Cardiac failure congestive

REACTIONS (1)
  - Off label use [Unknown]
